APPROVED DRUG PRODUCT: LITHANE
Active Ingredient: LITHIUM CARBONATE
Strength: 300MG
Dosage Form/Route: TABLET;ORAL
Application: N018833 | Product #001
Applicant: BAYER PHARMACEUTICALS CORP
Approved: Jul 18, 1985 | RLD: No | RS: No | Type: DISCN